FAERS Safety Report 14100944 (Version 2)
Quarter: 2017Q4

REPORT INFORMATION
  Report Type: Spontaneous
  Country: PL (occurrence: GB)
  Receive Date: 20171018
  Receipt Date: 20171101
  Transmission Date: 20180321
  Serious: Yes (Hospitalization, Other)
  Sender: FDA-Public Use
  Company Number: PL-009507513-1710GBR007953

PATIENT
  Age: 2 Year
  Sex: Male

DRUGS (2)
  1. CLENIL MODULITE [Concomitant]
     Active Substance: BECLOMETHASONE DIPROPIONATE
     Indication: ASTHMA
     Dosage: UNK
     Dates: start: 201704
  2. SINGULAIR [Suspect]
     Active Substance: MONTELUKAST SODIUM
     Indication: ASTHMA
     Dosage: 4 MG (1 TABLET), QD
     Route: 048
     Dates: start: 20170922, end: 20171010

REACTIONS (13)
  - Muscle contracture [Not Recovered/Not Resolved]
  - Pyrexia [Recovered/Resolved]
  - Photophobia [Recovered/Resolved]
  - Crying [Recovered/Resolved]
  - Diarrhoea [Recovered/Resolved]
  - Body temperature decreased [Recovered/Resolved]
  - Slow response to stimuli [Recovered/Resolved]
  - Nightmare [Recovered/Resolved]
  - Vomiting [Recovered/Resolved]
  - Convulsion in childhood [Recovered/Resolved]
  - Psychomotor hyperactivity [Recovered/Resolved]
  - Balance disorder [Recovered/Resolved]
  - Convulsion in childhood [Recovered/Resolved]

NARRATIVE: CASE EVENT DATE: 2017
